FAERS Safety Report 20173196 (Version 3)
Quarter: 2022Q1

REPORT INFORMATION
  Report Type: Spontaneous
  Country: NG (occurrence: NG)
  Receive Date: 20211211
  Receipt Date: 20220201
  Transmission Date: 20220423
  Serious: Yes (Hospitalization)
  Sender: FDA-Public Use
  Company Number: NG-NOVARTISPH-NVSC2021NG281369

PATIENT
  Age: 61 Year
  Sex: Female

DRUGS (2)
  1. TEGRETOL XR [Suspect]
     Active Substance: CARBAMAZEPINE
     Indication: Seizure
     Dosage: 400 MG, Q12H
     Route: 048
     Dates: start: 20211203
  2. TEGRETOL XR [Suspect]
     Active Substance: CARBAMAZEPINE
     Dosage: UNK
     Route: 065

REACTIONS (2)
  - Blister [Not Recovered/Not Resolved]
  - Pruritus [Unknown]

NARRATIVE: CASE EVENT DATE: 20211204
